FAERS Safety Report 9600357 (Version 1)
Quarter: 2013Q4

REPORT INFORMATION
  Report Type: Spontaneous
  Country: US (occurrence: US)
  Receive Date: 20131004
  Receipt Date: 20131004
  Transmission Date: 20140711
  Serious: No
  Sender: FDA-Public Use
  Company Number: US-AMGEN-USASP2013035112

PATIENT
  Age: 64 Year
  Sex: Female

DRUGS (1)
  1. ENBREL [Suspect]
     Indication: PSORIASIS
     Dosage: 25 MG, 2 TIMES/WK
     Dates: start: 20130301

REACTIONS (5)
  - Pruritus [Not Recovered/Not Resolved]
  - Pruritus generalised [Recovered/Resolved]
  - Tinea pedis [Recovered/Resolved]
  - Influenza [Recovered/Resolved]
  - Psoriasis [Not Recovered/Not Resolved]
